FAERS Safety Report 4485013-6 (Version None)
Quarter: 2004Q4

REPORT INFORMATION
  Report Type: 
  Country: None (occurrence: None)
  Receive Date: 20041026
  Receipt Date: 20041014
  Transmission Date: 20050328
  Serious: Yes (Hospitalization)
  Sender: FDA-Public Use
  Company Number: JP-JNJFOC-20040300517

PATIENT
  Sex: Female
  Weight: 46 kg

DRUGS (15)
  1. REMICADE [Suspect]
     Route: 041
  2. REMICADE [Suspect]
     Route: 041
  3. REMICADE [Suspect]
     Route: 041
  4. REMICADE [Suspect]
     Route: 041
  5. REMICADE [Suspect]
     Route: 041
  6. REMICADE [Suspect]
     Route: 041
  7. REMICADE [Suspect]
     Route: 041
  8. REMICADE [Suspect]
     Route: 041
  9. REMICADE [Suspect]
     Route: 041
  10. REMICADE [Suspect]
     Route: 041
  11. REMICADE [Suspect]
     Indication: RHEUMATOID ARTHRITIS
     Route: 041
  12. RHEUMATREX [Concomitant]
     Route: 049
     Dates: start: 20030514
  13. METHOTREXATE [Concomitant]
     Route: 049
     Dates: start: 20030514
  14. LOXONIN [Concomitant]
     Route: 049
     Dates: start: 19960517
  15. SOLON [Concomitant]
     Route: 049
     Dates: start: 20000816

REACTIONS (5)
  - ANAPHYLACTOID REACTION [None]
  - FACE OEDEMA [None]
  - NAUSEA [None]
  - PYREXIA [None]
  - SHOCK [None]
